FAERS Safety Report 6978773-3 (Version None)
Quarter: 2010Q3

REPORT INFORMATION
  Report Type: 
  Country: None (occurrence: None)
  Receive Date: 20100913
  Receipt Date: 20100902
  Transmission Date: 20110219
  Serious: Yes (Hospitalization)
  Sender: FDA-Public Use
  Company Number: JP-ASTRAZENECA-2010SE37290

PATIENT
  Age: 75 Year
  Sex: Female
  Weight: 42 kg

DRUGS (9)
  1. CRESTOR [Suspect]
     Indication: HYPERCHOLESTEROLAEMIA
     Route: 048
     Dates: start: 20100723, end: 20100806
  2. REFLEX [Suspect]
     Indication: DEPRESSION
     Route: 048
     Dates: start: 20100623, end: 20100803
  3. ZOLOFT [Suspect]
     Indication: DEPRESSION
     Route: 048
     Dates: start: 20100630, end: 20100804
  4. ATELEC [Concomitant]
     Indication: HYPERTENSION
     Route: 048
     Dates: start: 20100201
  5. REBAMIPIDE [Concomitant]
     Indication: GASTRITIS
     Route: 048
     Dates: start: 20100207
  6. DOGMATYL [Concomitant]
     Indication: DEPRESSION
     Route: 048
     Dates: start: 20100623, end: 20100802
  7. GRAMALIL [Concomitant]
     Indication: DEPRESSION
     Route: 048
     Dates: start: 20100630
  8. PROMETHAZINE HYDROCHLORIDE [Concomitant]
     Indication: DEPRESSION
     Route: 048
     Dates: start: 20100707, end: 20100802
  9. HYPNOTICS AND SEDATIVES, ANTIANXIETICS [Concomitant]
     Indication: INSOMNIA
     Route: 048
     Dates: start: 20100802, end: 20100802

REACTIONS (1)
  - INAPPROPRIATE ANTIDIURETIC HORMONE SECRETION [None]
